FAERS Safety Report 4498165-9 (Version None)
Quarter: 2004Q4

REPORT INFORMATION
  Report Type: 
  Country: None (occurrence: None)
  Receive Date: 20041110
  Receipt Date: 20041011
  Transmission Date: 20050328
  Serious: Yes (Hospitalization)
  Sender: FDA-Public Use
  Company Number: DE-MERCK-0410DEU00489

PATIENT
  Age: 74 Year
  Sex: Female
  Weight: 62 kg

DRUGS (8)
  1. VIOXX [Suspect]
     Indication: RHEUMATOID ARTHRITIS
     Route: 048
     Dates: start: 20030429, end: 20040829
  2. PREDNISOLONE [Concomitant]
     Indication: RHEUMATOID ARTHRITIS
     Route: 065
  3. CALCIUM GLUCONATE AND CALCIUM PHOSPHATE TRIBASIC AND CHOLECALCIFEROL [Concomitant]
     Indication: OSTEOPOROSIS
     Route: 048
  4. METOPROLOL SUCCINATE [Concomitant]
     Indication: HYPERTENSION
     Route: 065
     Dates: start: 20040401
  5. METOPROLOL SUCCINATE [Concomitant]
     Indication: TACHYCARDIA
     Route: 065
     Dates: start: 20040401
  6. PANTOPRAZOLE SODIUM [Concomitant]
     Indication: GASTRITIS
     Route: 065
  7. TELMISARTAN [Concomitant]
     Indication: HYPERTENSION
     Route: 065
     Dates: start: 20031007
  8. METHOTREXATE [Concomitant]
     Indication: RHEUMATOID ARTHRITIS
     Route: 065
     Dates: start: 20031007

REACTIONS (5)
  - ATRIAL FIBRILLATION [None]
  - ERUCTATION [None]
  - NAUSEA [None]
  - PAIN [None]
  - VENTRICULAR EXTRASYSTOLES [None]
